FAERS Safety Report 8444354-8 (Version None)
Quarter: 2012Q2

REPORT INFORMATION
  Report Type: 
  Country: None (occurrence: None)
  Receive Date: 20120613
  Receipt Date: 20120613
  Transmission Date: 20120825
  Serious: Yes (Hospitalization, Other)
  Sender: FDA-Public Use
  Company Number: None

PATIENT
  Sex: Female
  Weight: 111.1313 kg

DRUGS (2)
  1. GAMMAGARD [Suspect]
     Indication: DEMYELINATING POLYNEUROPATHY
     Dosage: 45 GM, QDX5 D Q 3, MONTH, IV
     Route: 042
     Dates: start: 20120605, end: 20120613
  2. GAMMAGARD [Suspect]

REACTIONS (2)
  - ABDOMINAL PAIN UPPER [None]
  - DRUG INEFFECTIVE [None]
